FAERS Safety Report 24845150 (Version 1)
Quarter: 2025Q1

REPORT INFORMATION
  Report Type: Spontaneous
  Country: US (occurrence: US)
  Receive Date: 20250115
  Receipt Date: 20250115
  Transmission Date: 20250408
  Serious: No
  Sender: GLAXOSMITHKLINE
  Company Number: US-GSK-US2025AMR001217

PATIENT
  Age: 84 Year
  Sex: Male

DRUGS (1)
  1. FLUTICASONE FUROATE\VILANTEROL TRIFENATATE [Suspect]
     Active Substance: FLUTICASONE FUROATE\VILANTEROL TRIFENATATE
     Indication: Emphysema

REACTIONS (15)
  - Dizziness [Recovered/Resolved]
  - Haemoptysis [Recovered/Resolved]
  - Middle insomnia [Unknown]
  - Discomfort [Unknown]
  - Dyspnoea [Unknown]
  - Oedema [Unknown]
  - Joint swelling [Unknown]
  - Localised oedema [Unknown]
  - Asthenia [Unknown]
  - Throat tightness [Unknown]
  - Chest discomfort [Unknown]
  - Peripheral swelling [Unknown]
  - Illness [Unknown]
  - Feeling abnormal [Unknown]
  - Drug ineffective [Unknown]
